FAERS Safety Report 8598186-0 (Version None)
Quarter: 2012Q3

REPORT INFORMATION
  Report Type: 
  Country: None (occurrence: None)
  Receive Date: 20120816
  Receipt Date: 20120808
  Transmission Date: 20120928
  Serious: Yes (Other)
  Sender: FDA-Public Use
  Company Number: PHHY2012FR047451

PATIENT
  Sex: Female

DRUGS (2)
  1. IMATINIB MESYLATE [Suspect]
     Indication: CHRONIC MYELOID LEUKAEMIA
     Dosage: 400 MG, PER DAY
     Route: 048
     Dates: start: 20000101
  2. VALSARTAN [Suspect]
     Indication: HYPERTENSION
     Dosage: 80 MG, PER DAY
     Route: 048
     Dates: start: 20110701

REACTIONS (4)
  - INTERVERTEBRAL DISC PROTRUSION [None]
  - PAIN IN EXTREMITY [None]
  - OEDEMA [None]
  - SCIATICA [None]
